FAERS Safety Report 7914165-8 (Version None)
Quarter: 2011Q4

REPORT INFORMATION
  Report Type: 
  Country: None (occurrence: None)
  Receive Date: 20111115
  Receipt Date: 20111115
  Transmission Date: 20120403
  Serious: Yes (Other)
  Sender: FDA-Public Use
  Company Number: None

PATIENT
  Age: 2 Year
  Sex: Female
  Weight: 13.607 kg

DRUGS (1)
  1. ZYRTEC [Suspect]
     Indication: HYPERSENSITIVITY
     Dosage: 1/2 TSP
     Route: 048
     Dates: start: 20110301, end: 20110601

REACTIONS (5)
  - CONVULSION [None]
  - BALANCE DISORDER [None]
  - DISTURBANCE IN ATTENTION [None]
  - DYSKINESIA [None]
  - ANURIA [None]
